FAERS Safety Report 16591652 (Version 1)
Quarter: 2019Q3

REPORT INFORMATION
  Report Type: Spontaneous
  Country: US (occurrence: US)
  Receive Date: 20190605
  Receipt Date: 20190605
  Transmission Date: 20191004
  Serious: No
  Sender: FDA-Public Use
  Company Number: None

PATIENT
  Age: 65 Year
  Sex: Female
  Weight: 77.11 kg

DRUGS (1)
  1. STELARA [Suspect]
     Active Substance: USTEKINUMAB
     Indication: PSORIASIS
     Dosage: ?          OTHER STRENGTH:45 MG/O.5 ML;?
     Route: 058
     Dates: start: 201805

REACTIONS (4)
  - Therapeutic product effect decreased [None]
  - Meningitis [None]
  - Infection [None]
  - Condition aggravated [None]
